FAERS Safety Report 5058155-4 (Version None)
Quarter: 2006Q2

REPORT INFORMATION
  Report Type: 
  Country: None (occurrence: None)
  Receive Date: 20060627
  Receipt Date: 20060504
  Transmission Date: 20061013
  Serious: No
  Sender: FDA-Public Use
  Company Number: SP00853

PATIENT
  Age: 53 Year
  Sex: Female
  Weight: 50.3493 kg

DRUGS (7)
  1. XIFAXAN [Suspect]
     Indication: ABDOMINAL DISTENSION
     Dosage: 200MG/QD,ORAL
     Route: 048
     Dates: start: 20060501, end: 20060504
  2. PLAQUENIL [Concomitant]
  3. KLONOPIN [Concomitant]
  4. MEDROL [Concomitant]
  5. DARVOCET [Concomitant]
  6. MIRALAX [Concomitant]
  7. ZELNORM [Concomitant]

REACTIONS (4)
  - BURNING SENSATION [None]
  - CONDITION AGGRAVATED [None]
  - NEUROPATHY [None]
  - PARAESTHESIA [None]
